FAERS Safety Report 13546142 (Version 1)
Quarter: 2017Q2

REPORT INFORMATION
  Report Type: Spontaneous
  Country: US (occurrence: US)
  Receive Date: 20170514
  Receipt Date: 20170514
  Transmission Date: 20170830
  Serious: Yes (Disabling)
  Sender: FDA-Public Use
  Company Number: None

PATIENT
  Age: 66 Year
  Sex: Female
  Weight: 49.05 kg

DRUGS (5)
  1. GENERIC FLUOXETINE [Concomitant]
     Active Substance: FLUOXETINE HYDROCHLORIDE
  2. BASIC VITAMINS [Concomitant]
  3. GENERIC CONCERTA [Concomitant]
     Active Substance: METHYLPHENIDATE HYDROCHLORIDE
  4. METHYLPHENIDATE. [Suspect]
     Active Substance: METHYLPHENIDATE
     Indication: ATTENTION DEFICIT/HYPERACTIVITY DISORDER
     Dosage: ?          QUANTITY:1 CAPSULE(S);?
     Route: 048
  5. ACOCLYVIR [Concomitant]

REACTIONS (5)
  - Product substitution issue [None]
  - Nephrolithiasis [None]
  - Arthralgia [None]
  - Blood urine present [None]
  - Dysstasia [None]

NARRATIVE: CASE EVENT DATE: 20141228
